FAERS Safety Report 25728812 (Version 1)
Quarter: 2025Q3

REPORT INFORMATION
  Report Type: Spontaneous
  Country: US (occurrence: US)
  Receive Date: 20250826
  Receipt Date: 20250826
  Transmission Date: 20251021
  Serious: Yes (Other)
  Sender: APELLIS PHARMACEUTICALS
  Company Number: US-APELLIS PHARMACEUTICALS-APL-2023-002714

PATIENT

DRUGS (2)
  1. SYFOVRE [Suspect]
     Active Substance: PEGCETACOPLAN
     Indication: Dry age-related macular degeneration
     Route: 031
     Dates: start: 20230417
  2. SYFOVRE [Suspect]
     Active Substance: PEGCETACOPLAN
     Route: 065

REACTIONS (3)
  - Visual acuity reduced [Recovered/Resolved]
  - Uveitis [Not Recovered/Not Resolved]
  - Retinal vasculitis [Unknown]
